FAERS Safety Report 13860221 (Version 2)
Quarter: 2017Q3

REPORT INFORMATION
  Report Type: Spontaneous
  Country: CN (occurrence: CN)
  Receive Date: 20170811
  Receipt Date: 20170811
  Transmission Date: 20171127
  Serious: Yes (Other)
  Sender: FDA-Public Use
  Company Number: CN-BRACCO-2017CN03590

PATIENT
  Age: 55 Year
  Sex: Female

DRUGS (1)
  1. IOPAMIRO [Suspect]
     Active Substance: IOPAMIDOL
     Indication: COMPUTERISED TOMOGRAM CORONARY ARTERY
     Dosage: 65 ML, SINGLE
     Route: 042
     Dates: start: 20170607, end: 20170607

REACTIONS (3)
  - Blood pressure decreased [Recovering/Resolving]
  - Amaurosis [Recovering/Resolving]
  - Palpitations [Recovering/Resolving]

NARRATIVE: CASE EVENT DATE: 20170607
